FAERS Safety Report 8687010 (Version 5)
Quarter: 2012Q4

REPORT INFORMATION
  Report Type: 
  Country: US (occurrence: US)
  Receive Date: 20120727
  Receipt Date: 20121005
  Transmission Date: 20130627
  Serious: Yes (Life-Threatening, Hospitalization)
  Sender: FDA-Public Use
  Company Number: US-JNJFOC-20120709494

PATIENT
  Age: 57 Year
  Sex: Female
  Weight: 53.52 kg

DRUGS (3)
  1. TYLENOL [Suspect]
     Indication: MIGRAINE
     Dosage: 2 gelcaps around 5 to 6am and 2 gelcaps at 6pm and around 7pm
     Route: 048
     Dates: start: 20101016, end: 20101016
  2. VITAMINS WITH MINERALS [Concomitant]
     Indication: ROUTINE HEALTH MAINTENANCE
     Dosage: 1 year
     Route: 065
  3. ZINC [Concomitant]
     Indication: ROUTINE HEALTH MAINTENANCE
     Dosage: 6 months
     Route: 065

REACTIONS (5)
  - Abasia [Recovering/Resolving]
  - Toxicity to various agents [Not Recovered/Not Resolved]
  - Cold sweat [Not Recovered/Not Resolved]
  - Dizziness [Not Recovered/Not Resolved]
  - Amnesia [Not Recovered/Not Resolved]
